FAERS Safety Report 8804902 (Version 1)
Quarter: 2012Q4

REPORT INFORMATION
  Report Type: 
  Country: US (occurrence: US)
  Receive Date: 20120924
  Receipt Date: 20120924
  Transmission Date: 20130627
  Serious: Yes (Other)
  Sender: FDA-Public Use
  Company Number: US-PFIZER INC-2012235136

PATIENT
  Age: 43 Year
  Sex: Female
  Weight: 57.14 kg

DRUGS (7)
  1. LYRICA [Suspect]
     Indication: BACK INJURY
     Dosage: UNK
     Route: 048
  2. LYRICA [Suspect]
     Indication: FIBROMYALGIA
     Dosage: 75 mg, 2x/day
     Route: 048
     Dates: end: 20120916
  3. LYRICA [Suspect]
     Dosage: 75 mg, daily at bed time
     Route: 048
     Dates: start: 20120917
  4. XANAX [Suspect]
     Indication: ANXIETY
     Dosage: 0.5mg or 1mg, as needed
     Dates: start: 2006
  5. ATENOLOL [Suspect]
     Indication: HYPERTENSION
     Dosage: 25 mg, daily
  6. ATENOLOL [Suspect]
     Indication: CARDIAC VALVE DISEASE
  7. CYMBALTA [Suspect]
     Indication: DEPRESSION
     Dosage: 30 mg, daily

REACTIONS (6)
  - Cognitive disorder [Unknown]
  - Inappropriate schedule of drug administration [Unknown]
  - Speech disorder [Unknown]
  - Somnolence [Not Recovered/Not Resolved]
  - Headache [Unknown]
  - Confusional state [Unknown]
